FAERS Safety Report 19666053 (Version 1)
Quarter: 2021Q3

REPORT INFORMATION
  Report Type: Spontaneous
  Country: US (occurrence: US)
  Receive Date: 20210805
  Receipt Date: 20210805
  Transmission Date: 20211014
  Serious: Yes (Hospitalization, Disabling)
  Sender: FDA-Public Use
  Company Number: None

PATIENT
  Age: 23 Year
  Sex: Female

DRUGS (1)
  1. DIMETHYL FUMARATE [Suspect]
     Active Substance: DIMETHYL FUMARATE
     Indication: MULTIPLE SCLEROSIS
     Dosage: ?          OTHER DOSE:120 MG AND 240MG;?
     Route: 048
     Dates: start: 20210713, end: 20210723

REACTIONS (4)
  - Hypophagia [None]
  - Nausea [None]
  - Dehydration [None]
  - Therapy change [None]

NARRATIVE: CASE EVENT DATE: 20210723
